FAERS Safety Report 9400031 (Version 1)
Quarter: 2013Q3

REPORT INFORMATION
  Report Type: Spontaneous
  Country: JP (occurrence: JP)
  Receive Date: 20130715
  Receipt Date: 20130715
  Transmission Date: 20140515
  Serious: Yes (Other)
  Sender: FDA-Public Use
  Company Number: JP-PFIZER INC-2013183794

PATIENT
  Sex: Female

DRUGS (2)
  1. VFEND [Suspect]
     Indication: INFECTION IN AN IMMUNOCOMPROMISED HOST
     Dosage: UNK
     Route: 042
     Dates: start: 20130610
  2. REFLEX (MIRTAZAPINE) [Suspect]
     Indication: NAUSEA
     Dosage: UNK
     Dates: start: 2013

REACTIONS (3)
  - Cognitive disorder [Recovered/Resolved]
  - Pyrexia [Unknown]
  - Platelet count decreased [Unknown]
